FAERS Safety Report 6675295-4 (Version None)
Quarter: 2010Q2

REPORT INFORMATION
  Report Type: 
  Country: None (occurrence: None)
  Receive Date: 20100409
  Receipt Date: 20100115
  Transmission Date: 20101027
  Serious: No
  Sender: FDA-Public Use
  Company Number: A0839738A

PATIENT
  Age: 59 Year
  Sex: Female

DRUGS (11)
  1. TYKERB [Suspect]
     Indication: BREAST CANCER
     Dosage: 1250MG PER DAY
     Route: 048
     Dates: start: 20100112
  2. FEMARA [Concomitant]
  3. PROZAC [Concomitant]
  4. ATENOLOL [Concomitant]
  5. OXYCONTIN [Concomitant]
  6. SENOKOT [Concomitant]
  7. NEXIUM [Concomitant]
  8. OXYCODONE [Concomitant]
  9. PHENERGAN [Concomitant]
  10. DEXAMETHASONE [Concomitant]
  11. ZOFRAN [Concomitant]

REACTIONS (3)
  - NAUSEA [None]
  - RETCHING [None]
  - VOMITING [None]
